FAERS Safety Report 8617328-1 (Version None)
Quarter: 2012Q3

REPORT INFORMATION
  Report Type: 
  Country: None (occurrence: None)
  Receive Date: 20120823
  Receipt Date: 20120820
  Transmission Date: 20120928
  Serious: Yes (Hospitalization)
  Sender: FDA-Public Use
  Company Number: US-009507513-0701USA00400

PATIENT

DRUGS (14)
  1. NEXIUM [Concomitant]
  2. CHOLECALCIFEROL [Concomitant]
  3. JANUVIA [Suspect]
     Dosage: 50 MG, QD
     Route: 048
     Dates: start: 20120720
  4. ACTOS [Concomitant]
  5. BENICAR [Concomitant]
  6. ZETIA [Concomitant]
     Route: 048
  7. ASPIRIN [Concomitant]
  8. ASPIRIN [Concomitant]
  9. AMARYL [Concomitant]
  10. TYLENOL [Concomitant]
  11. JANUVIA [Suspect]
     Indication: TYPE 2 DIABETES MELLITUS
     Dosage: 50 MG, QD
     Route: 048
     Dates: start: 20061203
  12. PROZAC [Concomitant]
  13. OMEGA-3-ACID ETHYL ESTERS [Concomitant]
  14. FIBERCON [Concomitant]

REACTIONS (6)
  - PRODUCT QUALITY ISSUE [None]
  - LIVER OPERATION [None]
  - BLOOD GLUCOSE INCREASED [None]
  - COUGH [None]
  - INTESTINAL OPERATION [None]
  - RHINORRHOEA [None]
